FAERS Safety Report 10231521 (Version 1)
Quarter: 2014Q2

REPORT INFORMATION
  Report Type: Spontaneous
  Country: US (occurrence: US)
  Receive Date: 20140611
  Receipt Date: 20140611
  Transmission Date: 20141212
  Serious: No
  Sender: FDA-Public Use
  Company Number: US-GILEAD-2014-0104577

PATIENT
  Age: 67 Year
  Sex: Female

DRUGS (6)
  1. LETAIRIS [Suspect]
     Indication: PRODUCT USED FOR UNKNOWN INDICATION
     Dosage: 10 MG, UNK
     Route: 065
     Dates: start: 20121129
  2. LETAIRIS [Suspect]
     Dosage: 5 MG, UNK
     Route: 065
  3. LASIX                              /00032601/ [Concomitant]
  4. TYVASO [Concomitant]
  5. ADCIRCA [Concomitant]
  6. WARFARIN [Concomitant]

REACTIONS (4)
  - Fluid retention [Not Recovered/Not Resolved]
  - Peripheral swelling [Not Recovered/Not Resolved]
  - Fatigue [Not Recovered/Not Resolved]
  - Palpitations [Not Recovered/Not Resolved]
